FAERS Safety Report 7114169-1 (Version None)
Quarter: 2010Q4

REPORT INFORMATION
  Report Type: 
  Country: None (occurrence: None)
  Receive Date: 20101119
  Receipt Date: 20101111
  Transmission Date: 20110411
  Serious: Yes (Other)
  Sender: FDA-Public Use
  Company Number: US-MPIJNJ-2010-05658

PATIENT

DRUGS (1)
  1. VELCADE [Suspect]
     Indication: MALIGNANT GLIOMA
     Dosage: 1.9 MG/M2, CYCLIC
     Route: 042

REACTIONS (5)
  - DIARRHOEA [None]
  - HYPOTENSION [None]
  - HYPOXIA [None]
  - INFECTION [None]
  - PERIPHERAL SENSORY NEUROPATHY [None]
